FAERS Safety Report 14784363 (Version 1)
Quarter: 2018Q2

REPORT INFORMATION
  Report Type: Other
  Country: FR (occurrence: FR)
  Receive Date: 20180420
  Receipt Date: 20180420
  Transmission Date: 20180711
  Serious: Yes (Hospitalization)
  Sender: FDA-Public Use
  Company Number: FR-GLENMARK PHARMACEUTICALS-2018GMK034516

PATIENT

DRUGS (1)
  1. LAMOTRIGINE. [Suspect]
     Active Substance: LAMOTRIGINE
     Indication: BIPOLAR DISORDER
     Dosage: UNK, 50MG/J PENDANT 3 JOURS PUIS 75MG/J PENDANT 3J PUIS 100MG/J
     Route: 048
     Dates: start: 20180302, end: 20180323

REACTIONS (3)
  - Enanthema [Recovering/Resolving]
  - Rash maculo-papular [Recovering/Resolving]
  - Conjunctivitis [Recovered/Resolved]

NARRATIVE: CASE EVENT DATE: 201803
